FAERS Safety Report 20179720 (Version 2)
Quarter: 2022Q1

REPORT INFORMATION
  Report Type: Report from Study
  Country: CA (occurrence: CA)
  Receive Date: 20211214
  Receipt Date: 20220304
  Transmission Date: 20220423
  Serious: Yes (Other)
  Sender: FDA-Public Use
  Company Number: CA-TAKEDA-2021TUS078123

PATIENT
  Age: 24 Year
  Sex: Female

DRUGS (4)
  1. VEDOLIZUMAB [Suspect]
     Active Substance: VEDOLIZUMAB
     Indication: Colitis ulcerative
     Dosage: 300 MILLIGRAM
     Route: 042
     Dates: start: 20211124
  2. VEDOLIZUMAB [Suspect]
     Active Substance: VEDOLIZUMAB
     Dosage: 300 MILLIGRAM
     Route: 042
  3. VEDOLIZUMAB [Suspect]
     Active Substance: VEDOLIZUMAB
     Dosage: 300 MILLIGRAM
     Route: 042
  4. MESALAMINE [Concomitant]
     Active Substance: MESALAMINE
     Dosage: 4.8 GRAM
     Dates: start: 20190914

REACTIONS (11)
  - Haematochezia [Unknown]
  - Vision blurred [Unknown]
  - Eye irritation [Unknown]
  - Frequent bowel movements [Unknown]
  - Lacrimation increased [Recovered/Resolved]
  - Abnormal faeces [Unknown]
  - Weight decreased [Unknown]
  - Acne [Unknown]
  - Erythema [Unknown]
  - Arthralgia [Unknown]
  - Pruritus [Unknown]

NARRATIVE: CASE EVENT DATE: 20211206
